FAERS Safety Report 8478359-8 (Version None)
Quarter: 2012Q2

REPORT INFORMATION
  Report Type: 
  Country: None (occurrence: None)
  Receive Date: 20120629
  Receipt Date: 20120626
  Transmission Date: 20120825
  Serious: Yes (Hospitalization)
  Sender: FDA-Public Use
  Company Number: PHHY2012FR055007

PATIENT
  Sex: Male

DRUGS (11)
  1. PANTOPRAZOLE SODIUM [Suspect]
     Indication: OESOPHAGITIS
     Dosage: 40 MG, QD
     Route: 048
     Dates: start: 20110415, end: 20120525
  2. FERROUS SULFATE TAB [Concomitant]
  3. BUDESONIDE [Suspect]
     Indication: ASTHMA
     Dosage: 400 UG, BID
     Dates: start: 20111125, end: 20120525
  4. KETOCONAZOLE [Concomitant]
  5. VENTOLIN [Concomitant]
  6. FUROSEMIDE [Suspect]
     Dosage: 20 MG, UNK
     Route: 048
  7. FLECAINIDE ACETATE [Concomitant]
  8. TRIDESONIT [Concomitant]
  9. SINGULAIR [Suspect]
     Indication: ASTHMA
     Dosage: 10 MG, QD
     Route: 048
     Dates: start: 20110415, end: 20120525
  10. FORADIL [Suspect]
     Indication: ASTHMA
     Dosage: 12 UG, BID
     Dates: start: 20111125
  11. VALSARTAN [Concomitant]

REACTIONS (13)
  - BLOOD IMMUNOGLOBULIN M DECREASED [None]
  - RASH MACULO-PAPULAR [None]
  - URTICARIA [None]
  - EOSINOPHIL COUNT INCREASED [None]
  - PEMPHIGOID [None]
  - RASH GENERALISED [None]
  - DERMATITIS BULLOUS [None]
  - BIOPSY SKIN ABNORMAL [None]
  - RASH ERYTHEMATOUS [None]
  - PRURIGO [None]
  - NAUSEA [None]
  - VOMITING [None]
  - BLOOD IMMUNOGLOBULIN G DECREASED [None]
